FAERS Safety Report 20043334 (Version 2)
Quarter: 2025Q4

REPORT INFORMATION
  Report Type: Spontaneous
  Country: US (occurrence: US)
  Receive Date: 20211108
  Receipt Date: 20251017
  Transmission Date: 20260119
  Serious: No
  Sender: SANOFI AVENTIS
  Company Number: US-SANOFI-00839563

PATIENT
  Age: 63 Year
  Sex: Female
  Weight: 75 kg

DRUGS (3)
  1. DUPIXENT [Suspect]
     Active Substance: DUPILUMAB
     Indication: Asthma
     Dosage: 300 MG, QOW
     Route: 058
  2. Comirnaty [Concomitant]
     Dosage: UNK
  3. FLUZONE HIGH-DOSE NOS [Concomitant]
     Active Substance: INFLUENZA VIRUS VACCINE
     Dosage: UNK

REACTIONS (1)
  - Injection site nodule [Unknown]
